FAERS Safety Report 9224093 (Version 1)
Quarter: 2013Q2

REPORT INFORMATION
  Report Type: Spontaneous
  Country: US (occurrence: None)
  Receive Date: 20130409
  Receipt Date: 20130409
  Transmission Date: 20140414
  Serious: Yes (Hospitalization)
  Sender: FDA-Public Use
  Company Number: None

PATIENT
  Age: 63 Year
  Sex: Male
  Weight: 78.7 kg

DRUGS (1)
  1. CISPLATIN [Suspect]

REACTIONS (11)
  - Nausea [None]
  - Vomiting [None]
  - Mental status changes [None]
  - Therapeutic response decreased [None]
  - Retching [None]
  - Increased bronchial secretion [None]
  - Agitation [None]
  - Anxiety [None]
  - Oral candidiasis [None]
  - Oesophageal pain [None]
  - Hyponatraemia [None]
